FAERS Safety Report 5900039-0 (Version None)
Quarter: 2008Q3

REPORT INFORMATION
  Report Type: 
  Country: None (occurrence: None)
  Receive Date: 20080926
  Receipt Date: 20080916
  Transmission Date: 20090109
  Serious: Yes (Hospitalization)
  Sender: FDA-Public Use
  Company Number: FR-AVENTIS-200813380FR

PATIENT
  Age: 80 Year
  Sex: Female

DRUGS (9)
  1. LASIX [Suspect]
     Indication: HYPERTENSION
     Route: 048
     Dates: start: 20041008, end: 20041109
  2. LASIX [Suspect]
     Indication: CARDIAC FAILURE
     Route: 048
     Dates: start: 20041008, end: 20041109
  3. INIPOMP                            /01263201/ [Suspect]
     Indication: DRUG USE FOR UNKNOWN INDICATION
     Route: 048
     Dates: start: 20041008, end: 20041109
  4. CARDENSIEL [Suspect]
     Indication: CARDIAC FAILURE
     Route: 048
     Dates: start: 20041026, end: 20041109
  5. PREVISCAN                          /00789001/ [Suspect]
     Indication: ATRIAL FIBRILLATION
     Route: 048
     Dates: start: 20041008, end: 20041107
  6. ZESTRIL [Suspect]
     Indication: CARDIAC FAILURE
     Route: 048
     Dates: start: 20041008, end: 20041109
  7. ZESTRIL [Suspect]
     Indication: HYPERTENSION
     Route: 048
     Dates: start: 20041008, end: 20041109
  8. CORDARONE [Concomitant]
     Indication: ATRIAL FIBRILLATION
     Route: 048
     Dates: start: 20041008, end: 20041109
  9. TRINITRINE [Concomitant]
     Indication: DRUG USE FOR UNKNOWN INDICATION

REACTIONS (4)
  - AGRANULOCYTOSIS [None]
  - ASTHENIA [None]
  - INFLAMMATION [None]
  - RENAL FAILURE [None]
